FAERS Safety Report 6849208-6 (Version None)
Quarter: 2010Q3

REPORT INFORMATION
  Report Type: 
  Country: None (occurrence: None)
  Receive Date: 20100716
  Receipt Date: 20090416
  Transmission Date: 20110219
  Serious: No
  Sender: FDA-Public Use
  Company Number: US-PFIZER INC-2007082125

PATIENT
  Sex: Female
  Weight: 54.5 kg

DRUGS (4)
  1. CHANTIX [Suspect]
     Indication: SMOKING CESSATION THERAPY
     Dosage: 0.5 MG, 2X/DAY
     Dates: start: 20070917, end: 20070926
  2. PREVACID [Concomitant]
  3. ZOLPIDEM TARTRATE [Concomitant]
  4. SIMVASTATIN [Concomitant]

REACTIONS (3)
  - DIARRHOEA [None]
  - INCORRECT DOSE ADMINISTERED [None]
  - NAUSEA [None]
